FAERS Safety Report 5396054-9 (Version None)
Quarter: 2007Q3

REPORT INFORMATION
  Report Type: 
  Country: None (occurrence: None)
  Receive Date: 20070724
  Receipt Date: 20070712
  Transmission Date: 20080115
  Serious: Yes (Other)
  Sender: FDA-Public Use
  Company Number: CA-PFIZER INC-2007059887

PATIENT
  Sex: Male

DRUGS (2)
  1. CHAMPIX [Suspect]
     Indication: EX-SMOKER
     Dosage: DAILY DOSE:2MG
     Route: 048
  2. MORPHINE [Interacting]
     Indication: NEPHROLITHIASIS
     Route: 042

REACTIONS (4)
  - DRUG INEFFECTIVE [None]
  - DRUG INTERACTION [None]
  - PAIN [None]
  - SMOKER [None]
